FAERS Safety Report 17098157 (Version 12)
Quarter: 2021Q1

REPORT INFORMATION
  Report Type: Report from Study
  Country: IN (occurrence: IN)
  Receive Date: 20191202
  Receipt Date: 20210225
  Transmission Date: 20210419
  Serious: Yes (Life-Threatening, Hospitalization)
  Sender: FDA-Public Use
  Company Number: NVSC2019IN047825

PATIENT
  Age: 67 Year
  Sex: Male
  Weight: 41.5 kg

DRUGS (28)
  1. COMPARATOR CARBOPLATIN [Suspect]
     Active Substance: CARBOPLATIN
     Indication: NON-SMALL CELL LUNG CANCER
     Dosage: 450 UG, Q3W
     Route: 041
     Dates: start: 20190904, end: 20191112
  2. PAUSE [Concomitant]
     Indication: FEBRILE NEUTROPENIA
     Dosage: 500 UNK
     Route: 065
     Dates: start: 20191104, end: 20191105
  3. SODIUM BICARBONATE. [Concomitant]
     Active Substance: SODIUM BICARBONATE
     Indication: MUCOSAL INFLAMMATION
     Dosage: UNK
     Route: 065
     Dates: start: 20191119
  4. DROTIN [Concomitant]
     Indication: CHOLECYSTITIS
     Dosage: UNK
     Route: 065
     Dates: start: 20191106
  5. POTKLOR [Concomitant]
     Indication: FEBRILE NEUTROPENIA
     Dosage: UNK
     Route: 065
     Dates: start: 20191104, end: 20191105
  6. ULTRACET [Concomitant]
     Active Substance: ACETAMINOPHEN\TRAMADOL HYDROCHLORIDE
     Indication: NON-SMALL CELL LUNG CANCER
     Dosage: UNK
     Route: 065
     Dates: start: 20190716
  7. AZITHROMYCIN ANHYDROUS. [Concomitant]
     Active Substance: AZITHROMYCIN ANHYDROUS
     Indication: PROPHYLAXIS
     Dosage: UNK
     Route: 065
     Dates: start: 20190816
  8. SODIUM BICARBONATE. [Concomitant]
     Active Substance: SODIUM BICARBONATE
     Indication: FEBRILE NEUTROPENIA
     Dosage: UNK
     Route: 065
     Dates: start: 20191022
  9. A TO Z [Concomitant]
     Active Substance: MINERALS\VITAMINS
     Indication: FEBRILE NEUTROPENIA
     Dosage: UNK
     Route: 065
     Dates: start: 20191022
  10. PYREGESIC [Concomitant]
     Indication: PROPHYLAXIS
     Dosage: UNK
     Route: 065
     Dates: start: 20190930
  11. PAN [Concomitant]
     Indication: PROPHYLAXIS
     Dosage: UNK
     Route: 065
     Dates: start: 20191030, end: 20191104
  12. PANTOPRAZOL [Concomitant]
     Active Substance: PANTOPRAZOLE SODIUM
     Indication: CHOLECYSTITIS
     Dosage: UNK
     Route: 065
     Dates: start: 20191010
  13. ALLEGRA [Concomitant]
     Active Substance: FEXOFENADINE HYDROCHLORIDE
     Indication: RASH
     Dosage: UNK
     Route: 065
     Dates: start: 20190911
  14. MUCAINE [Concomitant]
     Active Substance: ALUMINUM HYDROXIDE\DIMETHICONE\MAGNESIUM HYDROXIDE
     Indication: CHOLECYSTITIS
     Dosage: UNK
     Route: 065
     Dates: start: 20191022
  15. DROTIN [Concomitant]
     Indication: PAIN PROPHYLAXIS
     Dosage: UNK
     Route: 065
     Dates: start: 20191010
  16. PYREGESIC [Concomitant]
     Indication: CHEST PAIN
     Dosage: UNK
     Route: 065
     Dates: start: 20191104
  17. MUCAINE [Concomitant]
     Active Substance: ALUMINUM HYDROXIDE\DIMETHICONE\MAGNESIUM HYDROXIDE
     Indication: FEBRILE NEUTROPENIA
     Dosage: UNK
     Route: 065
     Dates: start: 20191010
  18. LACTO CALAMINE [Concomitant]
     Indication: RASH
     Dosage: UNK
     Route: 065
     Dates: start: 20190911
  19. PAN [Concomitant]
     Indication: FEBRILE NEUTROPENIA
     Dosage: UNK
     Route: 065
     Dates: start: 20191105
  20. PERINORM [Concomitant]
     Indication: PROPHYLAXIS
     Dosage: 10 MG
     Route: 065
     Dates: start: 20190716
  21. MONTEK LC [Concomitant]
     Indication: PROPHYLAXIS
     Dosage: UNK
     Route: 065
     Dates: start: 20190816
  22. CANAKINUMAB. [Suspect]
     Active Substance: CANAKINUMAB
     Indication: NON-SMALL CELL LUNG CANCER
     Dosage: UNK
     Route: 042
     Dates: start: 20190904, end: 20191112
  23. COMPARATOR PEMETREXED [Suspect]
     Active Substance: PEMETREXED DISODIUM
     Indication: NON-SMALL CELL LUNG CANCER
     Dosage: 675 UG, Q3W
     Route: 042
     Dates: start: 20190904, end: 20191112
  24. COMPARATOR PEMBROLIZUMAB [Suspect]
     Active Substance: PEMBROLIZUMAB
     Indication: NON-SMALL CELL LUNG CANCER
     Dosage: 200 UG, Q3W
     Route: 041
     Dates: start: 20190904, end: 20191112
  25. ZOFER [Concomitant]
     Active Substance: ONDANSETRON HYDROCHLORIDE
     Indication: PROPHYLAXIS OF NAUSEA AND VOMITING
     Dosage: 8 MG
     Route: 065
     Dates: start: 20190922
  26. A TO Z [Concomitant]
     Active Substance: MINERALS\VITAMINS
     Indication: GENERAL PHYSICAL CONDITION
     Dosage: UNK
     Route: 065
     Dates: start: 20190922
  27. BUDECORT [Concomitant]
     Active Substance: BUDESONIDE
     Indication: RESPIRATORY DISTRESS
     Dosage: UNK
     Route: 055
     Dates: start: 20190816
  28. TIOVA [Concomitant]
     Indication: INHALATION THERAPY
     Dosage: UNK
     Route: 065
     Dates: start: 20190816

REACTIONS (2)
  - Pneumonia [Recovered/Resolved]
  - Lower respiratory tract infection [Recovered/Resolved]

NARRATIVE: CASE EVENT DATE: 20191121
